FAERS Safety Report 6108859-7 (Version None)
Quarter: 2009Q1

REPORT INFORMATION
  Report Type: 
  Country: None (occurrence: None)
  Receive Date: 20090309
  Receipt Date: 20090309
  Transmission Date: 20090719
  Serious: Yes (Hospitalization)
  Sender: FDA-Public Use
  Company Number: None

PATIENT
  Age: 33 Year
  Sex: Female
  Weight: 64.4108 kg

DRUGS (2)
  1. EFFEXOR XR [Suspect]
     Indication: BIPOLAR II DISORDER
     Dosage: 300 MG QAM PO
     Route: 048
     Dates: start: 20070426, end: 20081015
  2. EFFEXOR XR [Suspect]
     Indication: BIPOLAR II DISORDER
     Dosage: 75 MG QAM PO
     Route: 048
     Dates: start: 20070426, end: 20081015

REACTIONS (3)
  - INCORRECT DOSE ADMINISTERED [None]
  - MEDICATION ERROR [None]
  - RHABDOMYOLYSIS [None]
